FAERS Safety Report 17306691 (Version 2)
Quarter: 2020Q1

REPORT INFORMATION
  Report Type: Report from Study
  Country: JP (occurrence: JP)
  Receive Date: 20200123
  Receipt Date: 20200129
  Transmission Date: 20200409
  Serious: Yes (Hospitalization, Other)
  Sender: FDA-Public Use
  Company Number: JP-BRISTOL-MYERS SQUIBB COMPANY-BMS-2019-079399

PATIENT
  Age: 68 Year
  Sex: Male
  Weight: 57.6 kg

DRUGS (11)
  1. MEQUITAZINE [Concomitant]
     Active Substance: MEQUITAZINE
     Indication: URTICARIA CHRONIC
     Dosage: 6 MILLIGRAM, QD
     Route: 048
     Dates: start: 20071222
  2. HIRUDOID [Concomitant]
     Active Substance: GLYCOSAMINOGLYCANS
     Indication: SKIN DISORDER PROPHYLAXIS
     Dosage: APPROPRIATE DOSE, AS NECESSARY
     Route: 062
     Dates: start: 20190618
  3. OXALIPLATIN. [Suspect]
     Active Substance: OXALIPLATIN
     Indication: GASTRIC CANCER
     Dosage: 163.3 MILLIGRAM, Q3WK
     Route: 042
     Dates: start: 20190730
  4. OLOPATADINE HYDROCHLORIDE. [Concomitant]
     Active Substance: OLOPATADINE HYDROCHLORIDE
     Indication: URTICARIA CHRONIC
     Dosage: 10 MILLIGRAM, QD
     Route: 048
     Dates: start: 20071222
  5. BLINDED PLACEBO [Suspect]
     Active Substance: INVESTIGATIONAL PRODUCT
     Indication: GASTRIC CANCER
     Dosage: 360 MILLIGRAM
     Route: 041
     Dates: start: 20190618
  6. BLINDED NIVOLUMAB [Suspect]
     Active Substance: NIVOLUMAB
     Indication: GASTRIC CANCER
     Dosage: 360 MILLIGRAM
     Route: 041
     Dates: start: 20190618
  7. RACOL NF [Concomitant]
     Active Substance: AMINO ACIDS\DEXTROSE\ELECTROLYTES NOS\SOYBEAN OIL\VITAMINS
     Indication: NUTRITIONAL SUPPLEMENTATION
     Dosage: 400 MILLIGRAM, QD
     Route: 048
     Dates: start: 20190515
  8. CAPECITABINE. [Suspect]
     Active Substance: CAPECITABINE
     Indication: GASTRIC CANCER
     Dosage: 750 MILLIGRAM, 750 MG, EVERY 12H, A 2 WEEKS ON 1 WEEK OFF OF SCHEDULE
     Route: 048
     Dates: start: 20190618, end: 20190807
  9. FLAVININ [Concomitant]
     Indication: SEBORRHOEIC DERMATITIS
     Dosage: 30 MILLIGRAM, QD
     Route: 048
     Dates: start: 20030613
  10. PYRIDOXINE HYDROCHLORIDE. [Concomitant]
     Active Substance: PYRIDOXINE HYDROCHLORIDE
     Indication: SEBORRHOEIC DERMATITIS
     Dosage: 60 MILLIGRAM, QD
     Route: 048
     Dates: start: 20030613
  11. ACETAMINOPHEN. [Concomitant]
     Active Substance: ACETAMINOPHEN
     Indication: WOUND COMPLICATION
     Dosage: 400 MILLIGRAM, AS NECESSARY
     Route: 048
     Dates: start: 20190514

REACTIONS (2)
  - Decreased appetite [Recovering/Resolving]
  - Type 1 diabetes mellitus [Not Recovered/Not Resolved]

NARRATIVE: CASE EVENT DATE: 20190807
